FAERS Safety Report 8779694 (Version 1)
Quarter: 2012Q4

REPORT INFORMATION
  Report Type: 
  Country: US (occurrence: US)
  Receive Date: 20120912
  Receipt Date: 20120912
  Transmission Date: 20130627
  Serious: No
  Sender: FDA-Public Use
  Company Number: US-TEVA-354725USA

PATIENT
  Age: 16 Year
  Sex: Male

DRUGS (4)
  1. QNASL [Suspect]
     Indication: CHRONIC SINUSITIS
     Dosage: 80 Microgram Daily; 2 puffs in each nostril
     Dates: start: 20120816
  2. PERCOCET [Concomitant]
     Indication: PAIN
     Dosage: Q 4-6H prn
     Route: 048
  3. SOMA [Concomitant]
     Indication: MUSCLE RELAXANT THERAPY
     Dosage: PRN
     Route: 048
  4. KLONOPIN [Concomitant]
     Indication: SLEEP DISORDER
     Dosage: 1 Milligram Daily;
     Route: 048

REACTIONS (1)
  - Nasal discomfort [Not Recovered/Not Resolved]
